FAERS Safety Report 19802007 (Version 5)
Quarter: 2022Q3

REPORT INFORMATION
  Report Type: Other
  Country: GB (occurrence: None)
  Receive Date: 20210908
  Receipt Date: 20220711
  Transmission Date: 20221027
  Serious: Yes (Other)
  Sender: FDA-Public Use
  Company Number: GB-ROCHE-2903325

PATIENT
  Age: 45 Year
  Sex: Female
  Weight: 64.9 kg

DRUGS (25)
  1. ATEZOLIZUMAB [Suspect]
     Active Substance: ATEZOLIZUMAB
     Indication: Small cell lung cancer metastatic
     Dosage: DATE OF MOST RECENT DOSE OF STUDY DRUG (1680 MG) PRIOR TO AE/SAE: 22/JUL/2021
     Route: 041
     Dates: start: 20210401
  2. CARBOPLATIN [Suspect]
     Active Substance: CARBOPLATIN
     Indication: Small cell lung cancer metastatic
     Route: 065
     Dates: start: 20210311
  3. ETOPOSIDE [Suspect]
     Active Substance: ETOPOSIDE
     Indication: Small cell lung cancer metastatic
     Route: 042
     Dates: start: 20210311
  4. ETOPOSIDE [Suspect]
     Active Substance: ETOPOSIDE
     Route: 048
     Dates: start: 20210402
  5. METOCLOPRAMIDE [Concomitant]
     Active Substance: METOCLOPRAMIDE
     Dates: start: 20210401
  6. ALBUTEROL [Concomitant]
     Active Substance: ALBUTEROL
     Dates: start: 20210118
  7. BECLOMETHASONE\FORMOTEROL [Concomitant]
     Active Substance: BECLOMETHASONE\FORMOTEROL
     Dates: start: 20210104
  8. AMLODIPINE [Concomitant]
     Active Substance: AMLODIPINE BESYLATE
     Dates: start: 20210312
  9. MORPHINE SULFATE [Concomitant]
     Active Substance: MORPHINE SULFATE
     Dates: start: 20210506
  10. BUPRENORPHINE [Concomitant]
     Active Substance: BUPRENORPHINE
     Dates: start: 20210319
  11. FILGRASTIM [Concomitant]
     Active Substance: FILGRASTIM
     Indication: Prophylaxis
     Dates: start: 20210314
  12. LEVOFLOXACIN [Concomitant]
     Active Substance: LEVOFLOXACIN
     Indication: Prophylaxis
     Dates: start: 20210318
  13. DIFLAM [Concomitant]
     Dates: start: 20210311
  14. CHLORHEXIDINE [Concomitant]
     Active Substance: CHLORHEXIDINE
     Dates: start: 20210311
  15. DALTEPARIN [Concomitant]
     Active Substance: DALTEPARIN
     Indication: Prophylaxis
     Dates: start: 20210710, end: 20210712
  16. DALTEPARIN [Concomitant]
     Active Substance: DALTEPARIN
     Dates: start: 20210817
  17. FLUCONAZOLE [Concomitant]
     Active Substance: FLUCONAZOLE
     Indication: Prophylaxis
     Dates: start: 20210712
  18. COTRIMOXAZOLE [Concomitant]
     Active Substance: SULFAMETHOXAZOLE\TRIMETHOPRIM
     Indication: Prophylaxis
     Dates: start: 20210711
  19. POLYETHYLENE GLYCOLS [Concomitant]
     Active Substance: POLYETHYLENE GLYCOLS
     Dates: start: 20210710
  20. SODIUM ALGINATE [Concomitant]
     Active Substance: SODIUM ALGINATE
     Dates: start: 20210710, end: 20210711
  21. CYCLIZINE [Concomitant]
     Active Substance: CYCLIZINE
     Dates: start: 20210422, end: 20210712
  22. CYCLIZINE [Concomitant]
     Active Substance: CYCLIZINE
     Dates: start: 20210711, end: 20210712
  23. FAMOTIDINE [Concomitant]
     Active Substance: FAMOTIDINE
     Dates: start: 20210711, end: 20210711
  24. OXYCODONE HYDROCHLORIDE [Concomitant]
     Active Substance: OXYCODONE HYDROCHLORIDE
     Indication: Cancer pain
     Dates: start: 20210710, end: 20210711
  25. ACYCLOVIR [Concomitant]
     Active Substance: ACYCLOVIR
     Indication: Adverse event

REACTIONS (1)
  - Hypokalaemia [Not Recovered/Not Resolved]

NARRATIVE: CASE EVENT DATE: 20210731
